FAERS Safety Report 18663756 (Version 1)
Quarter: 2020Q4

REPORT INFORMATION
  Report Type: Report from Study
  Country: US (occurrence: US)
  Receive Date: 20201224
  Receipt Date: 20201224
  Transmission Date: 20210114
  Serious: Yes (Congenital Anomaly, Other)
  Sender: FDA-Public Use
  Company Number: US-ASTRAZENECA-2020SF71730

PATIENT
  Age: 736 Month
  Sex: Male

DRUGS (1)
  1. IMFINZI [Suspect]
     Active Substance: DURVALUMAB
     Indication: NON-SMALL CELL LUNG CANCER
     Route: 042
     Dates: start: 201905, end: 202007

REACTIONS (2)
  - Radiation fibrosis - lung [Unknown]
  - Pruritus [Unknown]

NARRATIVE: CASE EVENT DATE: 201905
